FAERS Safety Report 5354225-1 (Version None)
Quarter: 2007Q2

REPORT INFORMATION
  Report Type: 
  Country: None (occurrence: None)
  Receive Date: 20070612
  Receipt Date: 20070604
  Transmission Date: 20071010
  Serious: Yes (Other)
  Sender: FDA-Public Use
  Company Number: GB-ELI_LILLY_AND_COMPANY-GB200704000828

PATIENT
  Age: 78 Year
  Sex: Male
  Weight: 98.8 kg

DRUGS (9)
  1. HUMALOG MIX 75/25 [Suspect]
     Indication: DIABETES MELLITUS
     Dosage: 50 U, EACH MORNING
     Dates: start: 20050301
  2. HUMALOG MIX 75/25 [Suspect]
     Dosage: 60 U, EACH EVENING
     Dates: start: 20050301
  3. METFORMIN HCL [Concomitant]
  4. SPIRONOLACTONE [Concomitant]
  5. SIMVASTATIN [Concomitant]
  6. LEVOTHYROXINE SODIUM [Concomitant]
  7. RAMIPRIL [Concomitant]
  8. BETA BLOCKING AGENTS [Concomitant]
  9. FRUSEMIDE [Concomitant]

REACTIONS (5)
  - ANAEMIA [None]
  - BLOOD GLUCOSE INCREASED [None]
  - NASOPHARYNGITIS [None]
  - PHARYNGOLARYNGEAL PAIN [None]
  - SYNCOPE [None]
